FAERS Safety Report 6261579-0 (Version None)
Quarter: 2009Q3

REPORT INFORMATION
  Report Type: 
  Country: None (occurrence: None)
  Receive Date: 20090709
  Receipt Date: 20090630
  Transmission Date: 20100115
  Serious: Yes (Other)
  Sender: FDA-Public Use
  Company Number: PHHY2009IT17546

PATIENT
  Sex: Male

DRUGS (3)
  1. ZOMETA [Suspect]
     Indication: METASTASES TO BONE
     Dosage: 4 MG / MONTH
     Route: 042
     Dates: start: 20090130, end: 20090424
  2. FLUOROURACIL [Concomitant]
     Indication: OESOPHAGEAL CARCINOMA
     Dosage: 7000 MG
     Route: 042
     Dates: start: 20090112, end: 20090313
  3. CISPLATIN [Concomitant]
     Indication: OESOPHAGEAL CARCINOMA
     Dosage: 45 MG
     Route: 042
     Dates: start: 20090112, end: 20090313

REACTIONS (1)
  - OSTEONECROSIS [None]
